FAERS Safety Report 7418207-8 (Version None)
Quarter: 2011Q2

REPORT INFORMATION
  Report Type: 
  Country: None (occurrence: None)
  Receive Date: 20110415
  Receipt Date: 20110411
  Transmission Date: 20111010
  Serious: Yes (Hospitalization, Other)
  Sender: FDA-Public Use
  Company Number: US-ABBOTT-11P-163-0718568-00

PATIENT
  Age: 59 Year
  Sex: Female

DRUGS (11)
  1. VITAMIN D [Concomitant]
     Indication: VITAMIN SUPPLEMENTATION
     Route: 048
  2. CALCIUM SUPPLEMENT [Concomitant]
     Indication: MINERAL SUPPLEMENTATION
  3. HYDROCODONE BITARTRATE [Concomitant]
     Indication: PRODUCT USED FOR UNKNOWN INDICATION
  4. FISH OIL [Concomitant]
     Indication: SUPPLEMENTATION THERAPY
     Route: 048
  5. MULTI-VITAMIN [Concomitant]
     Indication: VITAMIN SUPPLEMENTATION
     Route: 048
  6. PROBIOTIC [Concomitant]
     Indication: SUPPLEMENTATION THERAPY
  7. HUMIRA [Suspect]
     Indication: RHEUMATOID ARTHRITIS
     Route: 058
     Dates: start: 20070101, end: 20091001
  8. PREDNISONE [Concomitant]
     Indication: ARTHRITIS
     Route: 048
  9. FLEXERIL [Concomitant]
     Indication: PAIN
     Route: 048
  10. MORPHINE [Concomitant]
     Indication: ARTHRALGIA
     Route: 048
  11. CHONDROITIN [Concomitant]
     Indication: SUPPLEMENTATION THERAPY

REACTIONS (11)
  - GALLBLADDER DISORDER [None]
  - GASTROINTESTINAL OBSTRUCTION [None]
  - HELICOBACTER INFECTION [None]
  - GASTROOESOPHAGEAL REFLUX DISEASE [None]
  - VOMITING [None]
  - ILL-DEFINED DISORDER [None]
  - ADENOCARCINOMA [None]
  - NEOPLASM MALIGNANT [None]
  - IMPAIRED GASTRIC EMPTYING [None]
  - OESOPHAGEAL IRRITATION [None]
  - INTESTINAL MASS [None]
